FAERS Safety Report 23037499 (Version 1)
Quarter: 2023Q4

REPORT INFORMATION
  Report Type: Other
  Country: None (occurrence: CN)
  Receive Date: 20231006
  Receipt Date: 20231006
  Transmission Date: 20240110
  Serious: Yes (Other)
  Sender: FDA-Public Use
  Company Number: CN-Nuvo Pharmaceuticals Inc-2146775

PATIENT
  Age: 34 Year
  Sex: Male

DRUGS (9)
  1. SULFASALAZINE [Suspect]
     Active Substance: SULFASALAZINE
     Indication: Ankylosing spondylitis
     Route: 065
  2. THALIDOMIDE [Suspect]
     Active Substance: THALIDOMIDE
     Route: 065
  3. MELOXICAM [Suspect]
     Active Substance: MELOXICAM
     Route: 065
  4. LEVETIRACETAM [Concomitant]
     Active Substance: LEVETIRACETAM
     Route: 048
  5. CLOPIDOGREL [Concomitant]
     Active Substance: CLOPIDOGREL BISULFATE
     Route: 048
  6. RIVAROXABAN [Concomitant]
     Active Substance: RIVAROXABAN
     Route: 048
  7. CELECOXIB [Concomitant]
     Active Substance: CELECOXIB
     Route: 048
  8. VALPROATE SODIUM [Concomitant]
     Active Substance: VALPROATE SODIUM
     Route: 065
  9. MANNITOL [Concomitant]
     Active Substance: MANNITOL
     Route: 065

REACTIONS (1)
  - Superior sagittal sinus thrombosis [Unknown]
